FAERS Safety Report 9438608 (Version 1)
Quarter: 2013Q3

REPORT INFORMATION
  Report Type: Spontaneous
  Country: US (occurrence: US)
  Receive Date: 20130802
  Receipt Date: 20130802
  Transmission Date: 20140515
  Serious: No
  Sender: FDA-Public Use
  Company Number: US-BAXTER-2013BAX027689

PATIENT
  Age: 46 Year
  Sex: Male

DRUGS (2)
  1. ARTISS [Suspect]
     Indication: OFF LABEL USE
     Route: 061
  2. ARTISS [Suspect]
     Indication: PTERYGIUM OPERATION

REACTIONS (3)
  - Graft complication [Unknown]
  - Scleral disorder [Unknown]
  - Pyogenic granuloma [Unknown]
